FAERS Safety Report 6676331-1 (Version None)
Quarter: 2010Q2

REPORT INFORMATION
  Report Type: 
  Country: None (occurrence: None)
  Receive Date: 20100408
  Receipt Date: 20100205
  Transmission Date: 20101027
  Serious: Yes (Hospitalization)
  Sender: FDA-Public Use
  Company Number: 2010PL000041

PATIENT
  Sex: Male

DRUGS (1)
  1. IMURAN [Suspect]
     Indication: DRUG USE FOR UNKNOWN INDICATION

REACTIONS (4)
  - H1N1 INFLUENZA [None]
  - LIVER DISORDER [None]
  - MYOCARDIAL INFARCTION [None]
  - PNEUMONIA VIRAL [None]
